FAERS Safety Report 10162703 (Version 2)
Quarter: 2014Q4

REPORT INFORMATION
  Report Type: Spontaneous
  Country: FR (occurrence: None)
  Receive Date: 20140507
  Receipt Date: 20141128
  Transmission Date: 20150528
  Serious: Yes (Other)
  Sender: FDA-Public Use
  Company Number: 2313947

PATIENT
  Age: 47 Year
  Sex: Female

DRUGS (6)
  1. CARBOPLATIN. [Suspect]
     Active Substance: CARBOPLATIN
     Indication: LYMPHOMA
     Route: 042
     Dates: start: 20131212, end: 20131212
  2. ETOPOSIDE. [Suspect]
     Active Substance: ETOPOSIDE
     Indication: LYMPHOMA
     Dosage: 165 MG MILLIGRAM(S), 1 DAY
     Route: 042
     Dates: start: 20131211, end: 20131213
  3. UROMITEXAN [Suspect]
     Active Substance: MESNA
     Indication: LYMPHOMA
     Dosage: 6 G GRAM(S), 1 HOUR
     Route: 042
     Dates: start: 20131212, end: 20131213
  4. MABTHERA [Suspect]
     Active Substance: RITUXIMAB
     Indication: LYMPHOMA
     Dosage: 619 MG MILLIGRAM(S), 1 DAY
     Route: 042
     Dates: start: 20131211, end: 20131211
  5. ZOPHREN [Concomitant]
     Active Substance: ONDANSETRON
  6. IFOSFAMIDE. [Suspect]
     Active Substance: IFOSFAMIDE
     Indication: LYMPHOMA
     Route: 042
     Dates: start: 20131212, end: 20131213

REACTIONS (4)
  - Confusional state [None]
  - Clonic convulsion [None]
  - Myoclonus [None]
  - Encephalopathy [None]

NARRATIVE: CASE EVENT DATE: 20131213
